FAERS Safety Report 10197288 (Version 1)
Quarter: 2014Q2

REPORT INFORMATION
  Report Type: Spontaneous
  Country: BR (occurrence: BR)
  Receive Date: 20140527
  Receipt Date: 20140527
  Transmission Date: 20141212
  Serious: Yes (Other)
  Sender: FDA-Public Use
  Company Number: PHHY2014BR064382

PATIENT
  Sex: Female

DRUGS (1)
  1. LEPONEX / CLOZARIL (CLOZAPINE) [Suspect]
     Dosage: 100 MG, UNK

REACTIONS (1)
  - Schizophrenia [Unknown]
